FAERS Safety Report 5357082-2 (Version None)
Quarter: 2007Q2

REPORT INFORMATION
  Report Type: 
  Country: None (occurrence: None)
  Receive Date: 20070614
  Receipt Date: 20070604
  Transmission Date: 20071010
  Serious: Yes (Hospitalization, Other)
  Sender: FDA-Public Use
  Company Number: GB-GENENTECH-242403

PATIENT
  Age: 36 Year
  Sex: Male

DRUGS (16)
  1. SOMATROPIN [Suspect]
     Indication: DRUG USE FOR UNKNOWN INDICATION
     Dosage: 8 IU, QD
  2. TESTOSTERONE PROPIONATE [Concomitant]
     Indication: DRUG USE FOR UNKNOWN INDICATION
  3. DECA-DURABOLIN [Concomitant]
     Indication: DRUG USE FOR UNKNOWN INDICATION
  4. OXYMETHOLONE [Concomitant]
     Indication: DRUG USE FOR UNKNOWN INDICATION
  5. DIANABOL [Concomitant]
     Indication: DRUG USE FOR UNKNOWN INDICATION
  6. TESTOSTERONE ENANTHATE [Concomitant]
     Indication: DRUG USE FOR UNKNOWN INDICATION
  7. LIOTHYRONINE SODIUM [Concomitant]
     Indication: DRUG USE FOR UNKNOWN INDICATION
  8. CLENBUTEROL HYDROCHLORIDE [Concomitant]
     Indication: DRUG USE FOR UNKNOWN INDICATION
  9. FLUOXYMESTERONE [Concomitant]
     Indication: DRUG USE FOR UNKNOWN INDICATION
  10. MESTEROLONE [Concomitant]
     Indication: DRUG USE FOR UNKNOWN INDICATION
  11. ANASTROZOLE [Concomitant]
     Indication: DRUG USE FOR UNKNOWN INDICATION
  12. STANOZOLOL [Concomitant]
     Indication: DRUG USE FOR UNKNOWN INDICATION
  13. SPIRONOLACTONE [Concomitant]
     Indication: DRUG USE FOR UNKNOWN INDICATION
  14. HUMAN CHORIONIC GONADOTROPIN [Concomitant]
     Indication: DRUG USE FOR UNKNOWN INDICATION
  15. INSULIN [Concomitant]
     Indication: DRUG USE FOR UNKNOWN INDICATION
  16. TRENBOLONE ACETATE [Concomitant]
     Indication: DRUG USE FOR UNKNOWN INDICATION

REACTIONS (5)
  - DIABETES MELLITUS [None]
  - DRUG ADMINISTRATION ERROR [None]
  - HEPATITIS [None]
  - RENAL FAILURE ACUTE [None]
  - WEIGHT DECREASED [None]
